FAERS Safety Report 20089527 (Version 1)
Quarter: 2021Q4

REPORT INFORMATION
  Report Type: Spontaneous
  Country: US (occurrence: US)
  Receive Date: 20211119
  Receipt Date: 20211119
  Transmission Date: 20220303
  Serious: Yes (Other)
  Sender: FDA-Public Use
  Company Number: US-NOVOPROD-865417

PATIENT
  Sex: Male

DRUGS (2)
  1. NOVOLOG MIX 70/30 [Suspect]
     Active Substance: INSULIN ASPART
     Indication: Product used for unknown indication
     Dosage: 20 IU, BID (IN THE MORNING AND AFTERNOON)
     Route: 058
     Dates: start: 202110
  2. HUMALOG [Suspect]
     Active Substance: INSULIN LISPRO
     Indication: Product used for unknown indication
     Dosage: 20 IU, QD (AT NIGHT)
     Route: 058
     Dates: start: 202110

REACTIONS (6)
  - Chest pain [Recovered/Resolved]
  - Dizziness [Unknown]
  - Injection site pain [Unknown]
  - Injection site pain [Unknown]
  - Blood glucose decreased [Not Recovered/Not Resolved]
  - Balance disorder [Unknown]

NARRATIVE: CASE EVENT DATE: 20211001
